FAERS Safety Report 12681634 (Version 1)
Quarter: 2016Q3

REPORT INFORMATION
  Report Type: Report from Study
  Country: ES (occurrence: ES)
  Receive Date: 20160824
  Receipt Date: 20160824
  Transmission Date: 20161109
  Serious: Yes (Death, Other)
  Sender: FDA-Public Use
  Company Number: ES-GILEAD-2005-0008482

PATIENT
  Age: 21 Day
  Sex: Female
  Weight: 2.59 kg

DRUGS (9)
  1. RANITIDINE. [Concomitant]
     Active Substance: RANITIDINE
     Route: 064
  2. ZIDOVUDINE. [Concomitant]
     Active Substance: ZIDOVUDINE
     Dosage: UNK
     Route: 064
     Dates: start: 20030203
  3. ATAZANAVIR [Suspect]
     Active Substance: ATAZANAVIR
     Dosage: UNK
     Route: 064
     Dates: start: 20041006
  4. DIDANOSINE. [Concomitant]
     Active Substance: DIDANOSINE
     Route: 064
     Dates: start: 20040906
  5. ZIDOVUDINE. [Concomitant]
     Active Substance: ZIDOVUDINE
     Dosage: UNK
     Route: 065
     Dates: start: 200504
  6. NELFINAVIR [Concomitant]
     Active Substance: NELFINAVIR
     Route: 064
     Dates: start: 20040906, end: 20041006
  7. TENOFOVIR DISOPROXIL FUMARATE. [Suspect]
     Active Substance: TENOFOVIR DISOPROXIL FUMARATE
     Indication: HIV INFECTION
     Dosage: UNK
     Route: 064
     Dates: start: 20030203, end: 20040906
  8. ATAZANAVIR [Suspect]
     Active Substance: ATAZANAVIR
     Indication: HIV INFECTION
     Dosage: 400 MG, QD
     Route: 064
     Dates: start: 20030203, end: 20040906
  9. VITAMIN D3 [Concomitant]
     Active Substance: CHOLECALCIFEROL
     Route: 065

REACTIONS (5)
  - Foetal exposure during pregnancy [Recovered/Resolved]
  - Cardio-respiratory arrest [Fatal]
  - Premature baby [Unknown]
  - Pneumocystis jirovecii pneumonia [Fatal]
  - HIV test positive [Not Recovered/Not Resolved]

NARRATIVE: CASE EVENT DATE: 20040728
